FAERS Safety Report 9203076 (Version 1)
Quarter: 2013Q1

REPORT INFORMATION
  Report Type: Spontaneous
  Country: GB (occurrence: None)
  Receive Date: 20130328
  Receipt Date: 20130328
  Transmission Date: 20140127
  Serious: Yes (Other)
  Sender: FDA-Public Use
  Company Number: GER/UKI/13/0028675

PATIENT
  Age: 50 Year
  Sex: Female
  Weight: 106 kg

DRUGS (5)
  1. SERTRALINE [Suspect]
     Indication: ANXIETY
     Route: 048
  2. OLANZAPINE (OLANZAPINE) [Concomitant]
  3. PROCYCLIDINE (PROCYCLIDINE) [Concomitant]
  4. SIMVASTATIN (SIMVASTATIN) [Concomitant]
  5. SODIUM VALPROATE (VALPROATE SODIUM) [Concomitant]

REACTIONS (2)
  - Rectal haemorrhage [None]
  - Colitis ulcerative [None]
